FAERS Safety Report 8111992-1 (Version None)
Quarter: 2012Q1

REPORT INFORMATION
  Report Type: 
  Country: None (occurrence: None)
  Receive Date: 20120203
  Receipt Date: 20120127
  Transmission Date: 20120608
  Serious: Yes (Hospitalization, Other)
  Sender: FDA-Public Use
  Company Number: BR-PFIZER INC-2012024379

PATIENT
  Age: 58 Year
  Sex: Female

DRUGS (2)
  1. SUTENT [Suspect]
     Indication: METASTATIC RENAL CELL CARCINOMA
     Dosage: 50 MG DAILY (CYCLE 4 TO 2)
     Route: 048
     Dates: start: 20111001
  2. ENALAPRIL [Concomitant]
     Dosage: UNK

REACTIONS (3)
  - DEHYDRATION [None]
  - DIARRHOEA [None]
  - VOMITING [None]
